FAERS Safety Report 10146424 (Version 1)
Quarter: 2014Q2

REPORT INFORMATION
  Report Type: Spontaneous
  Country: US (occurrence: None)
  Receive Date: 20140430
  Receipt Date: 20140430
  Transmission Date: 20141212
  Serious: Yes (Life-Threatening, Hospitalization)
  Sender: FDA-Public Use
  Company Number: None

PATIENT
  Age: 51 Year
  Sex: Male
  Weight: 154.22 kg

DRUGS (1)
  1. HUMALOG [Suspect]
     Indication: DIABETES MELLITUS
     Dosage: PRN, AS NEEDED, INSULIN PUMP
     Dates: start: 20140416, end: 20140421

REACTIONS (9)
  - Device malfunction [None]
  - Headache [None]
  - Confusional state [None]
  - Dizziness [None]
  - Encephalitis [None]
  - Hypertension [None]
  - Cerebrovascular accident [None]
  - Liquid product physical issue [None]
  - Malaise [None]
